FAERS Safety Report 5448522-9 (Version None)
Quarter: 2007Q3

REPORT INFORMATION
  Report Type: 
  Country: None (occurrence: None)
  Receive Date: 20070911
  Receipt Date: 20070831
  Transmission Date: 20080115
  Serious: Yes (Hospitalization)
  Sender: FDA-Public Use
  Company Number: US-ELI_LILLY_AND_COMPANY-US200708007132

PATIENT
  Age: 63 Year
  Sex: Female

DRUGS (2)
  1. HUMULIN 70/30 [Suspect]
     Dates: start: 20070101
  2. WATER PILLS [Concomitant]

REACTIONS (3)
  - BLOOD GLUCOSE INCREASED [None]
  - CARDIAC DISORDER [None]
  - DRUG INEFFECTIVE [None]
